FAERS Safety Report 11780522 (Version 2)
Quarter: 2015Q4

REPORT INFORMATION
  Report Type: Report from Study
  Country: NL (occurrence: NL)
  Receive Date: 20151126
  Receipt Date: 20151222
  Transmission Date: 20160305
  Serious: Yes (Hospitalization)
  Sender: FDA-Public Use
  Company Number: NL-AMGEN-NLDSL2015123183

PATIENT
  Age: 82 Year
  Sex: Male

DRUGS (2)
  1. XGEVA [Suspect]
     Active Substance: DENOSUMAB
     Indication: PROPHYLAXIS
     Dosage: 1.7 ML (120 MG) Q4WK
     Route: 058
  2. XGEVA [Suspect]
     Active Substance: DENOSUMAB
     Dosage: UNK
     Route: 058

REACTIONS (3)
  - Urinary tract infection [Recovering/Resolving]
  - Cerebrovascular accident [Unknown]
  - Cystitis [Unknown]

NARRATIVE: CASE EVENT DATE: 20151108
